FAERS Safety Report 8032753-8 (Version None)
Quarter: 2012Q1

REPORT INFORMATION
  Report Type: 
  Country: None (occurrence: None)
  Receive Date: 20120110
  Receipt Date: 20120109
  Transmission Date: 20120608
  Serious: Yes (Other)
  Sender: FDA-Public Use
  Company Number: CN-BAYER-2012-002530

PATIENT
  Age: 29 Year
  Sex: Female

DRUGS (1)
  1. YASMIN [Suspect]
     Dosage: 1 DF, QD
     Dates: start: 20110701

REACTIONS (3)
  - CARBOHYDRATE ANTIGEN 125 INCREASED [None]
  - CARBOHYDRATE ANTIGEN 19-9 INCREASED [None]
  - PALPITATIONS [None]
